FAERS Safety Report 14733038 (Version 1)
Quarter: 2018Q2

REPORT INFORMATION
  Report Type: Spontaneous
  Country: US (occurrence: US)
  Receive Date: 20180409
  Receipt Date: 20180409
  Transmission Date: 20180711
  Serious: Yes (Death, Life-Threatening, Other)
  Sender: FDA-Public Use
  Company Number: US-ACCORD-065403

PATIENT
  Age: 60 Year
  Sex: Female

DRUGS (4)
  1. FOLINIC ACID [Concomitant]
     Active Substance: LEUCOVORIN
     Indication: MUCINOUS ADENOCARCINOMA OF APPENDIX
     Dates: start: 20120110
  2. FLUOROURACIL. [Suspect]
     Active Substance: FLUOROURACIL
     Indication: MUCINOUS ADENOCARCINOMA OF APPENDIX
     Dosage: INITIALLY RECEIVED SYSTEMIC  5-FLUOROURACIL FROM 10-JAN-2012
  3. MITOMYCIN. [Concomitant]
     Active Substance: MITOMYCIN
     Indication: MUCINOUS ADENOCARCINOMA OF APPENDIX
     Dates: start: 20120110
  4. DOXORUBICIN [Concomitant]
     Active Substance: DOXORUBICIN
     Indication: MUCINOUS ADENOCARCINOMA OF APPENDIX
     Dates: start: 20120110

REACTIONS (5)
  - Dihydropyrimidine dehydrogenase deficiency [Unknown]
  - Neutropenia [Unknown]
  - Off label use [Unknown]
  - Alopecia totalis [Unknown]
  - Enterocutaneous fistula [Recovered/Resolved]
